FAERS Safety Report 6385691-0 (Version None)
Quarter: 2009Q4

REPORT INFORMATION
  Report Type: 
  Country: None (occurrence: None)
  Receive Date: 20091002
  Receipt Date: 20090420
  Transmission Date: 20100525
  Serious: No
  Sender: FDA-Public Use
  Company Number: US-ASTRAZENECA-2008UW23814

PATIENT
  Age: 68 Year
  Sex: Female
  Weight: 73.9 kg

DRUGS (4)
  1. ARIMIDEX [Suspect]
     Indication: BREAST CANCER
     Route: 048
     Dates: start: 20080101
  2. TYLENOL (CAPLET) [Concomitant]
  3. ASCORBIC ACID [Concomitant]
  4. CALCIUM D [Concomitant]

REACTIONS (1)
  - ABDOMINAL DISCOMFORT [None]
